FAERS Safety Report 7812258-7 (Version None)
Quarter: 2011Q4

REPORT INFORMATION
  Report Type: 
  Country: None (occurrence: None)
  Receive Date: 20111013
  Receipt Date: 20110816
  Transmission Date: 20120403
  Serious: No
  Sender: FDA-Public Use
  Company Number: US-NOVEN-11US002995

PATIENT
  Sex: Male
  Weight: 89.342 kg

DRUGS (5)
  1. IBUPROFEN [Concomitant]
     Indication: PAIN
     Dosage: 800 MG, QID
     Route: 048
  2. FENTANYL [Suspect]
     Indication: PAIN
     Dosage: 75 UG, Q48H
     Route: 062
     Dates: start: 20110801
  3. DILAUDID [Concomitant]
     Indication: PAIN
     Dosage: 8 MG, Q 4 HR.
     Route: 048
  4. OXYCODONE HCL [Concomitant]
     Indication: PAIN
     Dosage: 30 MG, PRN
  5. MORPHINE [Concomitant]
     Indication: PAIN
     Dosage: 30 MG, BID
     Route: 048

REACTIONS (3)
  - PRODUCT QUALITY ISSUE [None]
  - DRUG WITHDRAWAL SYNDROME [None]
  - DRUG ADMINISTRATION ERROR [None]
